FAERS Safety Report 5475503-1 (Version None)
Quarter: 2007Q3

REPORT INFORMATION
  Report Type: 
  Country: None (occurrence: None)
  Receive Date: 20070913
  Receipt Date: 20060922
  Transmission Date: 20080115
  Serious: Yes (Death)
  Sender: FDA-Public Use
  Company Number: T200601041

PATIENT
  Age: 54 Year
  Sex: Female

DRUGS (5)
  1. LORTAB [Suspect]
     Dosage: ORAL
     Route: 048
  2. REBIF [Suspect]
     Indication: MULTIPLE SCLEROSIS
     Dates: start: 20060602, end: 20060726
  3. ULTRAM [Suspect]
     Indication: PAIN
     Dosage: ORAL
     Route: 048
  4. LUNESTA [Suspect]
     Dosage: ORAL
     Route: 048
  5. DEPAKOTE [Suspect]
     Dosage: ORAL
     Route: 048

REACTIONS (2)
  - ACCIDENTAL OVERDOSE [None]
  - VOMITING [None]
